FAERS Safety Report 6127122-1 (Version None)
Quarter: 2009Q1

REPORT INFORMATION
  Report Type: 
  Country: None (occurrence: None)
  Receive Date: 20090320
  Receipt Date: 20090310
  Transmission Date: 20090719
  Serious: Yes (Hospitalization)
  Sender: FDA-Public Use
  Company Number: FR-PFIZER INC-2009182438

PATIENT

DRUGS (13)
  1. SOLU-MEDROL [Suspect]
     Indication: DYSPNOEA
     Dates: start: 20081006, end: 20081008
  2. PULMICORT-100 [Suspect]
     Indication: DYSPNOEA
     Dates: start: 20081006, end: 20081010
  3. CORTANCYL [Suspect]
     Route: 048
     Dates: end: 20081011
  4. TINZAPARIN SODIUM [Concomitant]
     Route: 058
     Dates: start: 20081006, end: 20081011
  5. ALENDRONATE SODIUM/COLECALCIFEROL [Concomitant]
     Route: 048
     Dates: start: 20081007
  6. CLOPIDOGREL [Concomitant]
     Route: 048
  7. TERBUTALINE SULFATE [Concomitant]
  8. IRBESARTAN [Concomitant]
  9. ACEBUTOLOL [Concomitant]
  10. OMEPRAZOLE [Concomitant]
  11. FINASTERIDE [Concomitant]
  12. NITRENDIPINE [Concomitant]
  13. HYDROCHLOROTHIAZIDE [Concomitant]

REACTIONS (1)
  - SPINAL COMPRESSION FRACTURE [None]
